FAERS Safety Report 8154454-8 (Version None)
Quarter: 2012Q1

REPORT INFORMATION
  Report Type: 
  Country: None (occurrence: None)
  Receive Date: 20120221
  Receipt Date: 20120130
  Transmission Date: 20120608
  Serious: Yes (Other)
  Sender: FDA-Public Use
  Company Number: PL-UCBSA-048767

PATIENT
  Age: 31 Year
  Sex: Female
  Weight: 75 kg

DRUGS (8)
  1. MESALAMINE [Concomitant]
     Indication: CROHN'S DISEASE
     Route: 048
     Dates: start: 20110528
  2. CALCIUM DOBESILATE [Concomitant]
     Indication: CROHN'S DISEASE
     Route: 048
     Dates: start: 20090225
  3. AZATHIOPRINE [Concomitant]
     Indication: CROHN'S DISEASE
     Route: 048
     Dates: start: 20080709
  4. ACIDUM FOLICUM [Concomitant]
     Indication: CROHN'S DISEASE
     Route: 048
     Dates: start: 20080709
  5. CERTOLIZUMAB PEGOL [Suspect]
     Indication: CROHN'S DISEASE
     Dosage: NO. OF DOSES RECEIVED:42
     Route: 058
     Dates: start: 20081201, end: 20111206
  6. FALVIT [Concomitant]
     Indication: CROHN'S DISEASE
     Dosage: 1 TABLET ONCE DAILY
     Route: 048
     Dates: start: 20080609
  7. FLUTICASONE PROPIONATE [Concomitant]
     Indication: RHINITIS ALLERGIC
     Dosage: PUF
     Route: 045
     Dates: start: 20110905
  8. ORAL CONTRACEPTIVE [Concomitant]

REACTIONS (8)
  - HAEMOGLOBIN DECREASED [None]
  - RED BLOOD CELL COUNT DECREASED [None]
  - BLOOD CALCIUM DECREASED [None]
  - MATERNAL EXPOSURE DURING PREGNANCY [None]
  - C-REACTIVE PROTEIN INCREASED [None]
  - PREGNANCY ON ORAL CONTRACEPTIVE [None]
  - ABORTION SPONTANEOUS [None]
  - LYMPHOCYTE PERCENTAGE DECREASED [None]
